FAERS Safety Report 17541086 (Version 1)
Quarter: 2020Q1

REPORT INFORMATION
  Report Type: Spontaneous
  Country: US (occurrence: US)
  Receive Date: 20200313
  Receipt Date: 20200313
  Transmission Date: 20200409
  Serious: No
  Sender: FDA-Public Use
  Company Number: US-PERRIGO-19US011702

PATIENT
  Age: 75 Year
  Sex: Male
  Weight: 78.46 kg

DRUGS (10)
  1. GABAPENTIN. [Concomitant]
     Active Substance: GABAPENTIN
     Indication: NERVE INJURY
     Dosage: UNK
     Route: 065
  2. HYDROCODONE [Concomitant]
     Active Substance: HYDROCODONE
     Indication: NECK PAIN
  3. PRAMIPEXOLE. [Concomitant]
     Active Substance: PRAMIPEXOLE
     Indication: RESTLESS LEGS SYNDROME
     Dosage: UNK
     Route: 065
  4. TOPIRAMATE. [Concomitant]
     Active Substance: TOPIRAMATE
     Indication: TREMOR
     Dosage: UNK
     Route: 065
  5. TESTOSTERONE CYPIONATE. [Suspect]
     Active Substance: TESTOSTERONE CYPIONATE
     Indication: BLOOD TESTOSTERONE DECREASED
     Dosage: 200 MG, ONCE PER MONTH
     Route: 030
     Dates: start: 20190811
  6. HYDROCODONE [Concomitant]
     Active Substance: HYDROCODONE
     Indication: BACK PAIN
     Dosage: UNK
     Route: 065
  7. DULOXETINE. [Concomitant]
     Active Substance: DULOXETINE
     Indication: BACK PAIN
     Dosage: UNK
     Route: 065
  8. TERAZOSIN [Concomitant]
     Active Substance: TERAZOSIN HYDROCHLORIDE
     Indication: HYPERTENSION
     Dosage: UNK
     Route: 065
  9. DULOXETINE. [Concomitant]
     Active Substance: DULOXETINE
     Indication: NECK PAIN
  10. PANTOPRAZOLE [Concomitant]
     Active Substance: PANTOPRAZOLE
     Indication: DYSPEPSIA
     Dosage: UNK
     Route: 065

REACTIONS (2)
  - Injection site pain [Not Recovered/Not Resolved]
  - Product administered at inappropriate site [Not Recovered/Not Resolved]

NARRATIVE: CASE EVENT DATE: 20190811
